FAERS Safety Report 4402324-0 (Version None)
Quarter: 2004Q3

REPORT INFORMATION
  Report Type: 
  Country: None (occurrence: None)
  Receive Date: 20040716
  Receipt Date: 20040706
  Transmission Date: 20050211
  Serious: Yes (Disabling)
  Sender: FDA-Public Use
  Company Number: GBWYE885407JUL04

PATIENT
  Age: 16 Year
  Sex: Female

DRUGS (1)
  1. MINOCIN [Suspect]
     Indication: ACNE
     Dosage: 10 MG 1X PER 1 DAY; ORAL
     Route: 048
     Dates: start: 20040116, end: 20040331

REACTIONS (3)
  - ALANINE AMINOTRANSFERASE INCREASED [None]
  - ANTIPHOSPHOLIPID SYNDROME [None]
  - LUPUS-LIKE SYNDROME [None]
